FAERS Safety Report 11928341 (Version 3)
Quarter: 2016Q2

REPORT INFORMATION
  Report Type: Spontaneous
  Country: GB (occurrence: GB)
  Receive Date: 20160119
  Receipt Date: 20160421
  Transmission Date: 20160815
  Serious: Yes (Other)
  Sender: FDA-Public Use
  Company Number: GB-BAXTER-2016BAX001734

PATIENT
  Sex: Female

DRUGS (9)
  1. DESFERRIOXAMINE [Suspect]
     Active Substance: DEFEROXAMINE MESYLATE
     Dosage: NIGHTLY OVER 8 HOURS
     Route: 058
     Dates: start: 20160304
  2. DESFERRIOXAMINE [Suspect]
     Active Substance: DEFEROXAMINE MESYLATE
     Indication: PRODUCT USED FOR UNKNOWN INDICATION
     Route: 065
     Dates: start: 201508
  3. SODIUM CHLORIDE 0.9% INTRAVENOUS INFUSION BP [Suspect]
     Active Substance: SODIUM CHLORIDE
     Indication: MEDICATION DILUTION
     Route: 065
     Dates: start: 201508
  4. WATER FOR INJECTION [Suspect]
     Active Substance: WATER
     Indication: MEDICATION DILUTION
     Route: 065
     Dates: start: 201508
  5. SODIUM CHLORIDE 0.9% INTRAVENOUS INFUSION BP [Suspect]
     Active Substance: SODIUM CHLORIDE
     Route: 065
     Dates: start: 20151218
  6. SODIUM CHLORIDE 0.9% INTRAVENOUS INFUSION BP [Suspect]
     Active Substance: SODIUM CHLORIDE
     Dosage: NIGHTLY OVER 8 HOURS
     Route: 058
     Dates: start: 20160304
  7. DESFERRIOXAMINE [Suspect]
     Active Substance: DEFEROXAMINE MESYLATE
     Route: 065
     Dates: start: 20151218
  8. WATER FOR INJECTION [Suspect]
     Active Substance: WATER
     Route: 065
     Dates: start: 20151218
  9. WATER FOR INJECTION [Suspect]
     Active Substance: WATER
     Dosage: NIGHTLY OVER 8 HOURS
     Route: 058
     Dates: start: 20160304

REACTIONS (3)
  - Lower respiratory tract infection bacterial [Recovered/Resolved]
  - Respiratory tract infection [Recovered/Resolved]
  - Influenza [Unknown]

NARRATIVE: CASE EVENT DATE: 20160105
